FAERS Safety Report 5450164-6 (Version None)
Quarter: 2007Q3

REPORT INFORMATION
  Report Type: 
  Country: None (occurrence: None)
  Receive Date: 20070912
  Receipt Date: 20070905
  Transmission Date: 20080115
  Serious: Yes (Other)
  Sender: FDA-Public Use
  Company Number: B0486761A

PATIENT
  Age: 65 Year
  Sex: Female
  Weight: 99 kg

DRUGS (7)
  1. ROPINIROLE HCL [Suspect]
     Indication: RESTLESS LEGS SYNDROME
     Dosage: 1G PER DAY
     Route: 048
  2. CO-DYDRAMOL [Concomitant]
     Indication: PAIN
  3. EZETIMIBE [Concomitant]
     Dosage: 10MG PER DAY
  4. IBUPROFEN [Concomitant]
     Indication: INFLAMMATION
     Dosage: 400MG THREE TIMES PER DAY
  5. ISPAGHULA HUSK [Concomitant]
     Dosage: 3.5G PER DAY
  6. LEVOTHYROXINE SODIUM [Concomitant]
     Indication: HYPOTHYROIDISM
     Dosage: 100MCG PER DAY
  7. ROSUVASTATIN [Concomitant]
     Dosage: 20MG PER DAY

REACTIONS (1)
  - MOBILITY DECREASED [None]
